FAERS Safety Report 23037102 (Version 2)
Quarter: 2023Q4

REPORT INFORMATION
  Report Type: Other
  Country: US (occurrence: None)
  Receive Date: 20231006
  Receipt Date: 20231010
  Transmission Date: 20240110
  Serious: No
  Sender: FDA-Public Use
  Company Number: US-ROCHE-3434129

PATIENT
  Age: 70 Year
  Sex: Male
  Weight: 97.61 kg

DRUGS (18)
  1. OCREVUS [Suspect]
     Active Substance: OCRELIZUMAB
     Indication: Relapsing multiple sclerosis
     Dosage: DATES OF PREVIOUS INFUSION: 19/SEP/2022, INFUSE 300MG INTRAVENOUSLY ON DAYS 1 AND 15 THEN INFUSE 600
     Route: 042
  2. PROVIGIL [Concomitant]
     Active Substance: MODAFINIL
     Indication: Fatigue
  3. PROVIGIL [Concomitant]
     Active Substance: MODAFINIL
     Indication: Fatigue
  4. NORVASC [Concomitant]
     Active Substance: AMLODIPINE BESYLATE
     Indication: Hypertension
  5. CRESTOR [Concomitant]
     Active Substance: ROSUVASTATIN CALCIUM
     Indication: Hyperlipidaemia
  6. CRESTOR [Concomitant]
     Active Substance: ROSUVASTATIN CALCIUM
     Indication: Blood cholesterol increased
  7. TOPROL XL [Concomitant]
     Active Substance: METOPROLOL SUCCINATE
     Indication: Hypertension
  8. DIOVAN [Concomitant]
     Active Substance: VALSARTAN
     Indication: Hypertension
  9. ASPIRIN [Concomitant]
     Active Substance: ASPIRIN
  10. GLUCOSAMINE [Concomitant]
     Active Substance: GLUCOSAMINE
  11. HERBALS\TURMERIC [Concomitant]
     Active Substance: HERBALS\TURMERIC
     Indication: Arthritis
  12. CINNAMON [Concomitant]
     Active Substance: CINNAMON
     Route: 048
  13. FISH OIL [Concomitant]
     Active Substance: FISH OIL
  14. METOPROLOL [Concomitant]
     Active Substance: METOPROLOL
  15. SERTRALINE [Concomitant]
     Active Substance: SERTRALINE HYDROCHLORIDE
  16. ZOCOR [Concomitant]
     Active Substance: SIMVASTATIN
  17. VALSARTAN [Concomitant]
     Active Substance: VALSARTAN
  18. GLUCOSAMINE [Concomitant]
     Active Substance: GLUCOSAMINE

REACTIONS (1)
  - Influenza [Not Recovered/Not Resolved]

NARRATIVE: CASE EVENT DATE: 20230901
